FAERS Safety Report 6914573-8 (Version None)
Quarter: 2010Q3

REPORT INFORMATION
  Report Type: 
  Country: None (occurrence: None)
  Receive Date: 20100805
  Receipt Date: 20100805
  Transmission Date: 20110219
  Serious: No
  Sender: FDA-Public Use
  Company Number: None

PATIENT
  Sex: Female

DRUGS (1)
  1. FORTEO [Suspect]
     Dosage: 20 MCG Q DAILY SQ
     Route: 058
     Dates: start: 20091210, end: 20100726

REACTIONS (1)
  - TUMOUR MARKER INCREASED [None]
